FAERS Safety Report 9031473 (Version 2)
Quarter: 2013Q1

REPORT INFORMATION
  Report Type: Report from Study
  Country: NO (occurrence: NO)
  Receive Date: 20130124
  Receipt Date: 20130208
  Transmission Date: 20140127
  Serious: Yes (Other)
  Sender: FDA-Public Use
  Company Number: NO-ROCHE-1179324

PATIENT
  Age: 21 Year
  Sex: 0

DRUGS (4)
  1. MYCOPHENOLATE MOFETIL [Suspect]
     Indication: PROPHYLAXIS AGAINST TRANSPLANT REJECTION
     Route: 065
  2. PREDNISOLONE [Suspect]
     Indication: PROPHYLAXIS AGAINST TRANSPLANT REJECTION
     Route: 065
  3. TACROLIMUS [Suspect]
     Indication: IMMUNOSUPPRESSION
     Route: 065
  4. FLUDARA [Suspect]
     Indication: STEM CELL TRANSPLANT
     Route: 065

REACTIONS (5)
  - Obliterative bronchiolitis [Unknown]
  - Chronic graft versus host disease in skin [Unknown]
  - Chronic graft versus host disease [Unknown]
  - Chronic graft versus host disease in liver [Unknown]
  - Respiratory failure [Unknown]
